FAERS Safety Report 8102830-1 (Version None)
Quarter: 2011Q4

REPORT INFORMATION
  Report Type: 
  Country: None (occurrence: None)
  Receive Date: 20111222
  Receipt Date: 20111013
  Transmission Date: 20120403
  Serious: Yes (Hospitalization)
  Sender: FDA-Public Use
  Company Number: UTC-011226

PATIENT
  Age: 80 Year
  Sex: Female
  Weight: 59.09 kg

DRUGS (1)
  1. TYVASO [Suspect]
     Indication: PULMONARY ARTERIAL HYPERTENSION
     Dosage: 18 - 54 MICROGRAMS  (4 IN 1 D), INHALATION
     Route: 055
     Dates: start: 20110727

REACTIONS (1)
  - FALL [None]
